FAERS Safety Report 21410079 (Version 1)
Quarter: 2022Q4

REPORT INFORMATION
  Report Type: Other
  Country: RO (occurrence: None)
  Receive Date: 20221005
  Receipt Date: 20221005
  Transmission Date: 20230113
  Serious: Yes (Death)
  Sender: FDA-Public Use
  Company Number: RO-ROCHE-3191320

PATIENT
  Sex: Male
  Weight: 70 kg

DRUGS (2)
  1. ALECENSA [Suspect]
     Active Substance: ALECTINIB HYDROCHLORIDE
     Indication: Lung neoplasm malignant
     Dosage: DISCONTINUED
     Route: 065
     Dates: start: 202108
  2. MORPHINE [Concomitant]
     Active Substance: MORPHINE
     Indication: Pain

REACTIONS (2)
  - Drug ineffective [Unknown]
  - Lung carcinoma cell type unspecified recurrent [Fatal]
